FAERS Safety Report 4445300-4 (Version None)
Quarter: 2004Q3

REPORT INFORMATION
  Report Type: 
  Country: None (occurrence: None)
  Receive Date: 20040903
  Receipt Date: 20040818
  Transmission Date: 20050211
  Serious: Yes (Death)
  Sender: FDA-Public Use
  Company Number: DSA_24862_2004

PATIENT
  Age: 42 Year
  Sex: Male

DRUGS (4)
  1. ATIVAN [Suspect]
     Dates: start: 20040720, end: 20040720
  2. CLOZAPINE [Suspect]
     Dates: start: 20040720, end: 20040720
  3. MOVICOL [Suspect]
     Dates: start: 20040720, end: 20040720
  4. ZOPLICONE [Suspect]
     Dates: start: 20040720, end: 20040720

REACTIONS (2)
  - COMPLETED SUICIDE [None]
  - MULTIPLE DRUG OVERDOSE [None]
